FAERS Safety Report 18323391 (Version 1)
Quarter: 2020Q3

REPORT INFORMATION
  Report Type: Other
  Country: CA (occurrence: CA)
  Receive Date: 20200929
  Receipt Date: 20200929
  Transmission Date: 20201103
  Serious: Yes (Other)
  Sender: FDA-Public Use
  Company Number: CA-CELLTRION INC.-2020CA026815

PATIENT

DRUGS (11)
  1. RITUXIMAB (UNKNOWN) [Suspect]
     Active Substance: RITUXIMAB
     Indication: RHEUMATOID ARTHRITIS
     Dosage: 1000.0 MILLIGRAM, 1 EVERY 2 WEEKS
     Route: 041
  2. AMOXICILLIN. [Concomitant]
     Active Substance: AMOXICILLIN
     Indication: PROPHYLAXIS
     Dosage: 500.0 MILLIGRAM, 3 EVERY 1 DAYS
     Route: 048
  3. CALCIUM [Concomitant]
     Active Substance: CALCIUM
  4. ENALAPRIL MALEATE;HYDROCHLOROTHIAZIDE [Concomitant]
     Active Substance: ENALAPRIL MALEATE\HYDROCHLOROTHIAZIDE
  5. HYDROXYCHLOROQUINE SULFATE. [Concomitant]
     Active Substance: HYDROXYCHLOROQUINE SULFATE
  6. FOSAMAX [Concomitant]
     Active Substance: ALENDRONATE SODIUM
  7. IBUPROFEN. [Concomitant]
     Active Substance: IBUPROFEN
     Dosage: 3000.0 MILLIGRAM
     Route: 065
  8. METHOTREXATE. [Concomitant]
     Active Substance: METHOTREXATE
  9. FOLIC ACID. [Concomitant]
     Active Substance: FOLIC ACID
  10. POTASSIUM [Concomitant]
     Active Substance: POTASSIUM
  11. WINPRED [Concomitant]
     Active Substance: PREDNISONE

REACTIONS (4)
  - Large intestine polyp [Unknown]
  - Tooth fracture [Unknown]
  - Pain [Unknown]
  - Bronchitis [Unknown]
